FAERS Safety Report 4599873-1 (Version None)
Quarter: 2005Q1

REPORT INFORMATION
  Report Type: 
  Country: None (occurrence: None)
  Receive Date: 20050303
  Receipt Date: 20050223
  Transmission Date: 20050727
  Serious: Yes (Death, Disabling, Other)
  Sender: FDA-Public Use
  Company Number: 163-20785-04120270

PATIENT
  Age: 81 Year
  Sex: Male
  Weight: 80.5135 kg

DRUGS (8)
  1. THALOMID [Suspect]
     Indication: MULTIPLE MYELOMA
     Dosage: SEE IMAGE
     Route: 048
     Dates: start: 20040914, end: 20040920
  2. THALOMID [Suspect]
     Indication: MULTIPLE MYELOMA
     Dosage: SEE IMAGE
     Route: 048
     Dates: start: 20040921, end: 20041018
  3. THALOMID [Suspect]
     Indication: MULTIPLE MYELOMA
     Dosage: SEE IMAGE
     Route: 048
     Dates: start: 20041019, end: 20041101
  4. THALOMID [Suspect]
     Indication: MULTIPLE MYELOMA
     Dosage: SEE IMAGE
     Route: 048
     Dates: start: 20040101, end: 20041201
  5. THALOMID [Suspect]
  6. PROCRIT [Concomitant]
  7. PROSCAR [Concomitant]
  8. VITAMIN B6 [Concomitant]

REACTIONS (4)
  - DIALYSIS [None]
  - MALIGNANT NEOPLASM PROGRESSION [None]
  - MULTIPLE MYELOMA [None]
  - RENAL FAILURE [None]
